FAERS Safety Report 25581401 (Version 1)
Quarter: 2025Q3

REPORT INFORMATION
  Report Type: Spontaneous
  Country: US (occurrence: US)
  Receive Date: 20250718
  Receipt Date: 20250718
  Transmission Date: 20251021
  Serious: No
  Sender: NOVO NORDISK
  Company Number: US-NOVOPROD-1379487

PATIENT
  Sex: Female

DRUGS (1)
  1. WEGOVY [Suspect]
     Active Substance: SEMAGLUTIDE
     Indication: Weight control
     Route: 058
     Dates: start: 202311

REACTIONS (7)
  - Norovirus infection [Unknown]
  - Injection site injury [Unknown]
  - Injection site pain [Unknown]
  - Injection site swelling [Unknown]
  - Device defective [Unknown]
  - Needle issue [Unknown]
  - Product quality issue [Unknown]
